FAERS Safety Report 4467320-6 (Version None)
Quarter: 2004Q4

REPORT INFORMATION
  Report Type: 
  Country: None (occurrence: None)
  Receive Date: 20041004
  Receipt Date: 20040921
  Transmission Date: 20050328
  Serious: Yes (Other)
  Sender: FDA-Public Use
  Company Number: 2004235378US

PATIENT
  Sex: Female

DRUGS (4)
  1. PROVERA [Suspect]
     Indication: HORMONE REPLACEMENT THERAPY
     Dates: start: 19990101, end: 20010101
  2. PREMPRO [Suspect]
     Indication: HORMONE REPLACEMENT THERAPY
     Dosage: SEE IMAGE
     Dates: start: 19930101, end: 19980101
  3. PREMPRO [Suspect]
     Indication: HORMONE REPLACEMENT THERAPY
     Dosage: SEE IMAGE
     Dates: start: 19990101, end: 20000101
  4. ESTRATEST [Suspect]
     Indication: HORMONE REPLACEMENT THERAPY
     Dates: start: 19990101, end: 20000101

REACTIONS (1)
  - BREAST CANCER FEMALE [None]
